FAERS Safety Report 4532500-8 (Version None)
Quarter: 2004Q4

REPORT INFORMATION
  Report Type: 
  Country: None (occurrence: None)
  Receive Date: 20041206
  Receipt Date: 20040920
  Transmission Date: 20050328
  Serious: No
  Sender: FDA-Public Use
  Company Number: USA040978725

PATIENT
  Sex: Male

DRUGS (1)
  1. CYMBALTA [Suspect]
     Dosage: 30 MG DAY

REACTIONS (4)
  - ANXIETY [None]
  - ERECTILE DYSFUNCTION [None]
  - HYPERHIDROSIS [None]
  - NAUSEA [None]
